FAERS Safety Report 19166583 (Version 2)
Quarter: 2021Q2

REPORT INFORMATION
  Report Type: Spontaneous
  Country: SE (occurrence: SE)
  Receive Date: 20210422
  Receipt Date: 20210506
  Transmission Date: 20210717
  Serious: Yes (Death)
  Sender: FDA-Public Use
  Company Number: SE-SUN PHARMACEUTICAL INDUSTRIES LTD-2021RR-292582

PATIENT
  Age: 76 Year
  Sex: Male
  Weight: 80 kg

DRUGS (18)
  1. GEMCITABINE. [Suspect]
     Active Substance: GEMCITABINE
     Dosage: 1824 MG, 1000 MG/M2
     Route: 042
     Dates: start: 20210310, end: 20210310
  2. BISOPROLOL SANDOZ 2,5 MG FILMDRAGERAD TABLETT [Concomitant]
     Indication: PRODUCT USED FOR UNKNOWN INDICATION
     Dosage: 5 MILLIGRAM, DAILY
     Route: 048
     Dates: start: 20200313
  3. ONDANSETRON AUROBINDO 8 MG FILMDRAGERAD TABLETT [Concomitant]
     Indication: PRODUCT USED FOR UNKNOWN INDICATION
     Dosage: 8 MG 1 PA MORGONEN DAG 1 AV CYTOSTATIKABEHANDLING
     Route: 048
     Dates: start: 20210127
  4. BETAMETASON ALTERNOVA 0,5 MG TABLETT [Concomitant]
     Indication: PRODUCT USED FOR UNKNOWN INDICATION
     Dosage: 8 TABLETS ON DAY 1 OF CYSTOSTATIC TREATMENT
     Route: 048
     Dates: start: 20210127
  5. GEMCITABINE. [Suspect]
     Active Substance: GEMCITABINE
     Indication: PANCREATIC CARCINOMA METASTATIC
     Dosage: 1824 MG, 1000 MG/M2
     Route: 042
     Dates: start: 20210303, end: 20210303
  6. GEMCITABINE. [Suspect]
     Active Substance: GEMCITABINE
     Dosage: 1824 MG, 1000 MG/M2
     Route: 042
     Dates: start: 20210217
  7. COMIRNATY [Suspect]
     Active Substance: TOZINAMERAN
     Indication: PRODUCT USED FOR UNKNOWN INDICATION
     Dosage: DOS 2 ()
     Route: 065
     Dates: start: 20210205
  8. INSUMAN BASAL SOLOSTAR 100 IE/ML INJEKTIONSVATSKA, SUSPENSION I FORFYL [Concomitant]
     Indication: PRODUCT USED FOR UNKNOWN INDICATION
     Dosage: UNK, DAILY, 0+28+0+8 (2)
     Route: 058
     Dates: start: 20200506
  9. ESOMEPRAZOL KRKA 40 MG ENTEROKAPSEL, HARD [Concomitant]
     Indication: PRODUCT USED FOR UNKNOWN INDICATION
     Dosage: 40 MILLIGRAM, DAILY
     Route: 048
     Dates: start: 20200520
  10. FURIX 40 MG TABLETT [Concomitant]
     Indication: PRODUCT USED FOR UNKNOWN INDICATION
     Dosage: 40 MILLIGRAM, DAILY
     Route: 048
     Dates: start: 20200522
  11. STESOLID 5 MG TABLETT [Concomitant]
     Active Substance: DIAZEPAM
     Indication: PRODUCT USED FOR UNKNOWN INDICATION
     Dosage: 5 MILLIGRAM, 1 TABLET IF NEEDED FOR THE NIGHT; AS NECESSARY
     Route: 048
     Dates: start: 20210127
  12. ALLOPURINOL NORDIC DRUGS 100 MG TABLETT [Concomitant]
     Active Substance: ALLOPURINOL
     Indication: PRODUCT USED FOR UNKNOWN INDICATION
     Dosage: 100 MILLIGRAM, DAILY
     Route: 048
     Dates: start: 20200506
  13. SERTRALIN HEXAL 100 MG FILMDRAGERAD TABLETT [Concomitant]
     Indication: PRODUCT USED FOR UNKNOWN INDICATION
     Dosage: 100 MILLIGRAM, DAILY
     Route: 048
     Dates: start: 20200522
  14. COMIRNATY [Suspect]
     Active Substance: TOZINAMERAN
     Dosage: DOS 2 ()
     Route: 065
     Dates: start: 20210303
  15. GEMCITABINE. [Suspect]
     Active Substance: GEMCITABINE
     Dosage: 1824 MG, 1000 MG/M2
     Route: 042
     Dates: start: 20210203, end: 20210203
  16. COMIRNATY [Suspect]
     Active Substance: TOZINAMERAN
     Dosage: DOS 2 ()
     Route: 065
     Dates: start: 20210304
  17. ATORBIR 40 MG FILMDRAGERAD TABLETT [Concomitant]
     Indication: PRODUCT USED FOR UNKNOWN INDICATION
     Dosage: 40 MILLIGRAM, DAILY
     Route: 048
     Dates: start: 20200522
  18. ACETYLSALICYLSYRA TEVA 75 MG TABLETT [Concomitant]
     Indication: PRODUCT USED FOR UNKNOWN INDICATION
     Dosage: 75 MILLIGRAM, DAILY
     Route: 048
     Dates: start: 20200522

REACTIONS (1)
  - Thrombocytopenia [Fatal]

NARRATIVE: CASE EVENT DATE: 202103
